FAERS Safety Report 6372158-9 (Version None)
Quarter: 2009Q3

REPORT INFORMATION
  Report Type: 
  Country: None (occurrence: None)
  Receive Date: 20090917
  Receipt Date: 20090904
  Transmission Date: 20100115
  Serious: Yes (Other)
  Sender: FDA-Public Use
  Company Number: ADR15752009

PATIENT
  Age: 40 Year
  Sex: Female

DRUGS (4)
  1. SERTRALINE HCL [Suspect]
     Indication: DEPRESSION
     Dosage: 50 MG, ORAL
     Route: 048
     Dates: start: 20080925, end: 20081008
  2. CITALOPRAM HYDROBROMIDE [Suspect]
     Indication: DEPRESSION
     Dosage: 10 MG, ORAL
     Route: 048
     Dates: start: 20081008
  3. AMITRIPTYLINE [Concomitant]
  4. CO-CODAMOL [Concomitant]

REACTIONS (2)
  - BRUXISM [None]
  - DRUG EFFECT DECREASED [None]
